FAERS Safety Report 22256302 (Version 1)
Quarter: 2023Q2

REPORT INFORMATION
  Report Type: Spontaneous
  Country: US (occurrence: None)
  Receive Date: 20230425
  Receipt Date: 20230425
  Transmission Date: 20230722
  Serious: No
  Sender: FDA-Public Use
  Company Number: None

PATIENT
  Sex: Female
  Weight: 68.49 kg

DRUGS (9)
  1. CAPECITABINE [Suspect]
     Active Substance: CAPECITABINE
     Indication: Colon cancer
     Dosage: FREQUENCY : TWICE A DAY;?
     Route: 048
     Dates: start: 202301
  2. CAPECITABINE [Suspect]
     Active Substance: CAPECITABINE
     Indication: Colon cancer
     Dosage: FREQUENCY : TWICE A DAY;?
     Route: 048
     Dates: start: 202301
  3. ARMOUR THYROID [Concomitant]
     Active Substance: THYROID, PORCINE
  4. AVASTIN [Concomitant]
     Active Substance: BEVACIZUMAB
  5. CHOLECALCIFEROL [Concomitant]
     Active Substance: CHOLECALCIFEROL
  6. CYANOCOBALAMIN [Concomitant]
     Active Substance: CYANOCOBALAMIN
  7. DEXAMETHASONE [Concomitant]
     Active Substance: DEXAMETHASONE
  8. NORVASC [Concomitant]
     Active Substance: AMLODIPINE BESYLATE
  9. PROCHLORPERAZINE [Concomitant]
     Active Substance: PROCHLORPERAZINE

REACTIONS (1)
  - Disease progression [None]
